FAERS Safety Report 15208926 (Version 2)
Quarter: 2022Q1

REPORT INFORMATION
  Report Type: Report from Study
  Country: US (occurrence: US)
  Receive Date: 20180727
  Receipt Date: 20220121
  Transmission Date: 20220424
  Serious: No
  Sender: FDA-Public Use
  Company Number: US-SHIRE-US201828856

PATIENT
  Sex: Female
  Weight: 63 kg

DRUGS (8)
  1. TEDUGLUTIDE [Suspect]
     Active Substance: TEDUGLUTIDE
     Indication: Product used for unknown indication
     Dosage: 0.34 IU, UNK
     Route: 065
     Dates: start: 20160425
  2. TEDUGLUTIDE [Suspect]
     Active Substance: TEDUGLUTIDE
     Indication: Product used for unknown indication
     Dosage: 0.34 IU, UNK
     Route: 065
     Dates: start: 20160425
  3. TEDUGLUTIDE [Suspect]
     Active Substance: TEDUGLUTIDE
     Indication: Product used for unknown indication
     Dosage: 0.34 IU, UNK
     Route: 065
     Dates: start: 20160425
  4. TEDUGLUTIDE [Suspect]
     Active Substance: TEDUGLUTIDE
     Indication: Product used for unknown indication
     Dosage: 0.34 IU, UNK
     Route: 065
     Dates: start: 20160425
  5. TEDUGLUTIDE [Suspect]
     Active Substance: TEDUGLUTIDE
     Dosage: 0.3 MILLILITER, QD
     Route: 058
     Dates: start: 20200910
  6. TEDUGLUTIDE [Suspect]
     Active Substance: TEDUGLUTIDE
     Dosage: 0.3 MILLILITER, QD
     Route: 058
     Dates: start: 20200910
  7. TEDUGLUTIDE [Suspect]
     Active Substance: TEDUGLUTIDE
     Dosage: 0.3 MILLILITER, QD
     Route: 058
     Dates: start: 20200910
  8. TEDUGLUTIDE [Suspect]
     Active Substance: TEDUGLUTIDE
     Dosage: 0.3 MILLILITER, QD
     Route: 058
     Dates: start: 20200910

REACTIONS (3)
  - Weight abnormal [Recovering/Resolving]
  - Drug ineffective [Recovering/Resolving]
  - Incorrect dose administered [Unknown]
